FAERS Safety Report 6235311-0 (Version None)
Quarter: 2009Q2

REPORT INFORMATION
  Report Type: 
  Country: None (occurrence: None)
  Receive Date: 20090618
  Receipt Date: 20090603
  Transmission Date: 20091009
  Serious: Yes (Other)
  Sender: FDA-Public Use
  Company Number: SG-BAXTER-2009BH009489

PATIENT
  Age: 46 Year
  Sex: Female

DRUGS (1)
  1. TISSUCOL/TISSEEL DUO STIM3 [Suspect]
     Indication: HAEMOSTASIS
     Route: 065
     Dates: start: 20090401, end: 20090401

REACTIONS (2)
  - UTERINE HAEMATOMA [None]
  - VULVAL HAEMATOMA [None]
